FAERS Safety Report 21404781 (Version 1)
Quarter: 2022Q3

REPORT INFORMATION
  Report Type: Spontaneous
  Country: US (occurrence: None)
  Receive Date: 20220930
  Receipt Date: 20220930
  Transmission Date: 20221026
  Serious: No
  Sender: FDA-Public Use
  Company Number: None

PATIENT
  Age: 59 Year
  Sex: Male

DRUGS (1)
  1. OLANZAPINE [Suspect]
     Active Substance: OLANZAPINE
     Indication: Schizoaffective disorder
     Dosage: 20 MG BID PO
     Route: 048
     Dates: start: 20220531, end: 20220920

REACTIONS (5)
  - Overdose [None]
  - Confusional state [None]
  - Urinary retention [None]
  - Miosis [None]
  - Erythema [None]

NARRATIVE: CASE EVENT DATE: 20220825
